FAERS Safety Report 25106484 (Version 1)
Quarter: 2025Q1

REPORT INFORMATION
  Report Type: Spontaneous
  Country: US (occurrence: US)
  Receive Date: 20250321
  Receipt Date: 20250321
  Transmission Date: 20250409
  Serious: Yes (Other)
  Sender: AMGEN
  Company Number: US-AMGEN-USASP2025054920

PATIENT
  Age: 30 Year
  Sex: Female

DRUGS (7)
  1. PREDNISONE [Suspect]
     Active Substance: PREDNISONE
     Indication: Pericarditis
     Route: 065
  2. COLCHICINE [Concomitant]
     Active Substance: COLCHICINE
     Indication: Pericarditis
  3. IBUPROFEN [Concomitant]
     Active Substance: IBUPROFEN
     Indication: Pericarditis
  4. AZATHIOPRINE [Concomitant]
     Active Substance: AZATHIOPRINE
     Indication: Pericarditis
  5. ANAKINRA [Concomitant]
     Active Substance: ANAKINRA
     Indication: Pericarditis
  6. RILONACEPT [Concomitant]
     Active Substance: RILONACEPT
     Indication: Pericarditis
  7. RILONACEPT [Concomitant]
     Active Substance: RILONACEPT

REACTIONS (2)
  - Pericarditis [Recovered/Resolved]
  - Off label use [Unknown]
